FAERS Safety Report 4487586-6 (Version None)
Quarter: 2004Q4

REPORT INFORMATION
  Report Type: 
  Country: None (occurrence: None)
  Receive Date: 20041027
  Receipt Date: 20041027
  Transmission Date: 20050328
  Serious: Yes (Death, Life-Threatening, Hospitalization)
  Sender: FDA-Public Use
  Company Number: None

PATIENT
  Age: 57 Year
  Sex: Male
  Weight: 94 kg

DRUGS (9)
  1. WARFARIN   5 MG [Suspect]
     Indication: ATRIAL FIBRILLATION
     Dosage: 7.5 MG   QD   ORAL
     Route: 048
     Dates: start: 20020101, end: 20040420
  2. CLONIDINE HCL [Concomitant]
  3. FELODIPINE [Concomitant]
  4. HYDROCHLOROTHIAZIDE [Concomitant]
  5. OMEPRAZOLE [Concomitant]
  6. SIMVASTATIN [Concomitant]
  7. FOSINOPRIL SODIUM [Concomitant]
  8. METOPROLOL SUCCINATE [Concomitant]
  9. AMIODARONE HCL [Concomitant]

REACTIONS (3)
  - CEREBRAL HAEMORRHAGE [None]
  - INTERNATIONAL NORMALISED RATIO INCREASED [None]
  - PROTHROMBIN TIME PROLONGED [None]
